FAERS Safety Report 17950708 (Version 2)
Quarter: 2020Q3

REPORT INFORMATION
  Report Type: Spontaneous
  Country: DE (occurrence: DE)
  Receive Date: 20200626
  Receipt Date: 20200701
  Transmission Date: 20201103
  Serious: Yes (Hospitalization)
  Sender: FDA-Public Use
  Company Number: DE-EISAI MEDICAL RESEARCH-EC-2020-076424

PATIENT
  Age: 57 Year
  Sex: Male

DRUGS (3)
  1. PHENYTOIN. [Concomitant]
     Active Substance: PHENYTOIN
     Indication: WRONG PATIENT RECEIVED PRODUCT
     Route: 048
     Dates: start: 20200619, end: 20200619
  2. BRIVIACT [Concomitant]
     Active Substance: BRIVARACETAM
     Indication: WRONG PATIENT RECEIVED PRODUCT
     Route: 048
     Dates: start: 20200619, end: 20200619
  3. FYCOMPA [Suspect]
     Active Substance: PERAMPANEL
     Indication: WRONG PATIENT RECEIVED PRODUCT
     Route: 048
     Dates: start: 20200619, end: 20200619

REACTIONS (2)
  - Somnolence [Recovering/Resolving]
  - Wrong patient received product [Recovering/Resolving]

NARRATIVE: CASE EVENT DATE: 20200619
